FAERS Safety Report 7341732-5 (Version None)
Quarter: 2011Q1

REPORT INFORMATION
  Report Type: 
  Country: None (occurrence: None)
  Receive Date: 20110309
  Receipt Date: 20110307
  Transmission Date: 20110831
  Serious: Yes (Other)
  Sender: FDA-Public Use
  Company Number: JP-PFIZER INC-2010175984

PATIENT
  Age: 62 Year
  Sex: Male

DRUGS (4)
  1. NORVASC [Concomitant]
     Indication: HYPERTENSION
     Dosage: 5 MG, 1X/DAY
     Route: 048
     Dates: start: 20100820, end: 20101205
  2. CHAMPIX [Suspect]
     Indication: NICOTINE DEPENDENCE
     Dosage: 0.5 MG, 1X/DAY
     Route: 048
     Dates: start: 20101021, end: 20101023
  3. CHAMPIX [Suspect]
     Dosage: 0.5 MG, 2X/DAY
     Route: 048
     Dates: start: 20101024, end: 20101027
  4. CHAMPIX [Suspect]
     Dosage: 1 MG, 2X/DAY
     Route: 048
     Dates: start: 20101028, end: 20101205

REACTIONS (7)
  - POLLAKIURIA [None]
  - STOMATITIS [None]
  - HUNGER [None]
  - DIABETES MELLITUS [None]
  - THIRST [None]
  - ORAL MUCOSA EROSION [None]
  - DECREASED APPETITE [None]
